FAERS Safety Report 5332858-6 (Version None)
Quarter: 2007Q2

REPORT INFORMATION
  Report Type: 
  Country: None (occurrence: None)
  Receive Date: 20070521
  Receipt Date: 20070514
  Transmission Date: 20071010
  Serious: Yes (Hospitalization)
  Sender: FDA-Public Use
  Company Number: 2007SP009206

PATIENT
  Age: 54 Year
  Sex: Female

DRUGS (1)
  1. TEMODAL [Suspect]
     Indication: GLIOSARCOMA
     Dates: start: 20070301, end: 20070330

REACTIONS (1)
  - INTERSTITIAL LUNG DISEASE [None]
